FAERS Safety Report 13159382 (Version 1)
Quarter: 2017Q1

REPORT INFORMATION
  Report Type: Spontaneous
  Country: BE (occurrence: BE)
  Receive Date: 20170127
  Receipt Date: 20170127
  Transmission Date: 20170428
  Serious: No
  Sender: FDA-Public Use
  Company Number: BE-MALLINCKRODT-T201601518

PATIENT
  Age: 30 Year
  Sex: Female
  Weight: 64 kg

DRUGS (3)
  1. TECHNESCAN HDP [Suspect]
     Active Substance: TECHNETIUM TC-99M OXIDRONATE
     Indication: HEPATOBILIARY SCAN
     Dosage: 0.5 ML, SINGLE
     Route: 042
     Dates: start: 20160421
  2. BRIDATEC [Suspect]
     Active Substance: TECHNETIUM TC-99M MEBROFENIN
     Indication: HEPATOBILIARY SCAN
     Dosage: UNK, SINGLE
     Route: 042
     Dates: start: 20160421
  3. ULTRA-TECHNEKOW FM [Suspect]
     Active Substance: TECHNETIUM TC-99M SODIUM PERTECHNETATE
     Indication: HEPATOBILIARY SCAN
     Dosage: 176 MBQ, SINGLE
     Route: 042
     Dates: start: 20160421

REACTIONS (3)
  - Drug ineffective [Unknown]
  - Wrong drug administered [Unknown]
  - Product label on wrong product [None]

NARRATIVE: CASE EVENT DATE: 20160421
